FAERS Safety Report 9976862 (Version 1)
Quarter: 2014Q1

REPORT INFORMATION
  Report Type: Report from Study
  Country: US (occurrence: US)
  Receive Date: 20140306
  Receipt Date: 20140306
  Transmission Date: 20141002
  Serious: No
  Sender: FDA-Public Use
  Company Number: US-ABBVIE-13P-163-1167649-00

PATIENT
  Age: 58 Year
  Sex: Female

DRUGS (12)
  1. HUMIRA [Suspect]
     Indication: RHEUMATOID ARTHRITIS
     Dates: start: 20130725
  2. DETROL LA [Concomitant]
     Indication: HYPERTONIC BLADDER
  3. LISINOPRIL [Concomitant]
     Indication: HYPERTENSION
  4. GLIMEPIRIDE [Concomitant]
     Indication: DIABETES MELLITUS
  5. TRADJENTA [Concomitant]
     Indication: DIABETES MELLITUS
  6. PREDNISONE [Concomitant]
     Indication: PRODUCT USED FOR UNKNOWN INDICATION
  7. METHOTREXATE [Concomitant]
     Indication: RHEUMATOID ARTHRITIS
  8. FOLIC ACID [Concomitant]
     Indication: PRODUCT USED FOR UNKNOWN INDICATION
  9. TRIAMCINOLONE [Concomitant]
     Indication: BONE DISORDER
     Dates: start: 201309
  10. ALENDRONATE SODIUM [Concomitant]
     Indication: BONE DISORDER
     Dates: start: 201309
  11. CALCIUM [Concomitant]
     Indication: BONE DISORDER
     Dates: start: 201309
  12. VITAMIN D3 [Concomitant]
     Indication: BONE DISORDER
     Dates: start: 201309

REACTIONS (4)
  - Device malfunction [Unknown]
  - Incorrect dose administered [Unknown]
  - Injection site pain [Not Recovered/Not Resolved]
  - Injection site pain [Unknown]
